FAERS Safety Report 14509905 (Version 1)
Quarter: 2018Q1

REPORT INFORMATION
  Report Type: Spontaneous
  Country: US (occurrence: US)
  Receive Date: 20180209
  Receipt Date: 20180209
  Transmission Date: 20180509
  Serious: No
  Sender: FDA-Public Use
  Company Number: US-PFIZER INC-2018052113

PATIENT
  Age: 17 Year
  Sex: Male
  Weight: 57.61 kg

DRUGS (2)
  1. SERTRALINE HCL [Suspect]
     Active Substance: SERTRALINE HYDROCHLORIDE
     Indication: DEPRESSION
     Dosage: 50 MG, 1X/DAY
     Route: 048
     Dates: start: 201710
  2. CEPHALEXIN. [Concomitant]
     Active Substance: CEPHALEXIN
     Indication: ANTIBIOTIC THERAPY
     Dosage: 500 MG, 3X/DAY [FOR 7 DAYS]
     Route: 048

REACTIONS (1)
  - Drug screen false positive [Unknown]

NARRATIVE: CASE EVENT DATE: 20180126
